FAERS Safety Report 24943729 (Version 1)
Quarter: 2025Q1

REPORT INFORMATION
  Report Type: Spontaneous
  Country: US (occurrence: US)
  Receive Date: 20250207
  Receipt Date: 20250207
  Transmission Date: 20250409
  Serious: Yes (Death, Life-Threatening)
  Sender: DR REDDYS
  Company Number: None

PATIENT
  Age: 35 Year
  Sex: Male

DRUGS (4)
  1. DEXTROAMPHETAMINE [Suspect]
     Active Substance: DEXTROAMPHETAMINE
     Indication: Product used for unknown indication
  2. FENTANYL [Suspect]
     Active Substance: FENTANYL
     Indication: Product used for unknown indication
     Route: 042
  3. QUETIAPINE [Concomitant]
     Active Substance: QUETIAPINE
     Indication: Product used for unknown indication
  4. BUPROPION [Concomitant]
     Active Substance: BUPROPION
     Indication: Product used for unknown indication

REACTIONS (10)
  - Toxicity to various agents [Fatal]
  - Completed suicide [Fatal]
  - Intentional overdose [Fatal]
  - Ecchymosis [Fatal]
  - Injection site haemorrhage [Fatal]
  - Soft tissue haemorrhage [Fatal]
  - Pulmonary oedema [Fatal]
  - Brain oedema [Fatal]
  - Arteriosclerosis coronary artery [Fatal]
  - Aortic arteriosclerosis [Fatal]
